FAERS Safety Report 9796649 (Version 1)
Quarter: 2014Q1

REPORT INFORMATION
  Report Type: Spontaneous
  Country: AR (occurrence: AR)
  Receive Date: 20140103
  Receipt Date: 20140103
  Transmission Date: 20141002
  Serious: Yes (Other)
  Sender: FDA-Public Use
  Company Number: AR-WATSON-2013-23977

PATIENT
  Age: 8 Year
  Sex: Female

DRUGS (1)
  1. TRELSTAR (UNKNOWN) [Suspect]
     Indication: PRECOCIOUS PUBERTY

REACTIONS (7)
  - Hypersensitivity [Unknown]
  - Musculoskeletal disorder [Unknown]
  - Joint swelling [Unknown]
  - Pallor [Unknown]
  - Conjunctival hyperaemia [Unknown]
  - Arthralgia [Unknown]
  - Rash [Unknown]
